FAERS Safety Report 9564401 (Version 1)
Quarter: 2013Q3

REPORT INFORMATION
  Report Type: Spontaneous
  Country: US (occurrence: US)
  Receive Date: 20130930
  Receipt Date: 20130930
  Transmission Date: 20140515
  Serious: No
  Sender: FDA-Public Use
  Company Number: US-BIOGENIDEC-2013BI093288

PATIENT
  Sex: Female

DRUGS (10)
  1. TYSABRI [Suspect]
     Indication: PRODUCT USED FOR UNKNOWN INDICATION
  2. TECFIDERA [Concomitant]
     Indication: MULTIPLE SCLEROSIS
     Route: 048
  3. BACLOFEN [Concomitant]
  4. BIOTIN [Concomitant]
  5. CYMBALTA [Concomitant]
  6. SYNTHROID [Concomitant]
  7. TORPOL XL [Concomitant]
  8. VITAMIN C [Concomitant]
  9. XANAX [Concomitant]
  10. ZYRTEC [Concomitant]

REACTIONS (1)
  - Hypersensitivity [Unknown]
